FAERS Safety Report 9543599 (Version 1)
Quarter: 2013Q3

REPORT INFORMATION
  Report Type: Report from Study
  Country: US (occurrence: FR)
  Receive Date: 20130923
  Receipt Date: 20130923
  Transmission Date: 20140515
  Serious: Yes (Death, Other)
  Sender: FDA-Public Use
  Company Number: US-SANOFI-AVENTIS-CAMP-1002962

PATIENT
  Age: 85 Year
  Sex: Female

DRUGS (2)
  1. CAMPATH [Suspect]
     Indication: CHRONIC LYMPHOCYTIC LEUKAEMIA
     Dosage: UNK, 3 INJECTIONS PER WEEK
     Route: 059
     Dates: start: 20130218, end: 20130418
  2. CAMPATH [Suspect]
     Indication: CHRONIC LYMPHOCYTIC LEUKAEMIA
     Dosage: UNK, 3 INJECTIONS PER WEEK
     Route: 059
     Dates: start: 2013, end: 20130513

REACTIONS (2)
  - Autoimmune haemolytic anaemia [Fatal]
  - Drug ineffective [Unknown]
